FAERS Safety Report 6709294-0 (Version None)
Quarter: 2010Q2

REPORT INFORMATION
  Report Type: 
  Country: None (occurrence: None)
  Receive Date: 20100504
  Receipt Date: 20100428
  Transmission Date: 20101027
  Serious: Yes (Hospitalization, Other)
  Sender: FDA-Public Use
  Company Number: US-ELI_LILLY_AND_COMPANY-US201004008023

PATIENT
  Sex: Male

DRUGS (4)
  1. HUMALOG [Suspect]
     Dosage: 25 U, EACH MORNING
     Dates: start: 20080801
  2. HUMALOG [Suspect]
     Dosage: UNK, AS NEEDED
     Dates: start: 20080801
  3. LEVEMIR [Concomitant]
     Dosage: 60 U, EACH MORNING
     Dates: start: 20080801
  4. METFORMIN HCL [Concomitant]
     Dosage: 1000 MG, 2/D

REACTIONS (5)
  - BLOOD GLUCOSE INCREASED [None]
  - CORONARY ARTERY OCCLUSION [None]
  - INTRAOCULAR PRESSURE INCREASED [None]
  - PALPITATIONS [None]
  - THROAT TIGHTNESS [None]
